FAERS Safety Report 8154615-8 (Version None)
Quarter: 2012Q1

REPORT INFORMATION
  Report Type: 
  Country: None (occurrence: None)
  Receive Date: 20120221
  Receipt Date: 20120213
  Transmission Date: 20120608
  Serious: No
  Sender: FDA-Public Use
  Company Number: US-BAYER-2012-015140

PATIENT

DRUGS (4)
  1. VICODIN [Suspect]
  2. IBUPROFEN (ADVIL) [Suspect]
  3. UNKNOWN GUMMY MEDICATION [Concomitant]
  4. ALEVE (CAPLET) [Suspect]
     Indication: TOOTHACHE

REACTIONS (2)
  - HYPERSOMNIA [None]
  - NO ADVERSE EVENT [None]
